FAERS Safety Report 6447256-1 (Version None)
Quarter: 2009Q4

REPORT INFORMATION
  Report Type: 
  Country: None (occurrence: None)
  Receive Date: 20091119
  Receipt Date: 20091109
  Transmission Date: 20100525
  Serious: Yes (Other)
  Sender: FDA-Public Use
  Company Number: US-PFIZER INC-2006121135

PATIENT
  Sex: Female

DRUGS (9)
  1. LIPITOR [Suspect]
     Indication: BLOOD CHOLESTEROL INCREASED
     Dosage: UNK
  2. CRESTOR [Suspect]
     Indication: BLOOD CHOLESTEROL INCREASED
     Dosage: UNK
  3. PRILOSEC [Suspect]
     Dosage: UNK
     Dates: start: 20000101
  4. ADVAIR DISKUS 100/50 [Suspect]
     Dosage: UNK
  5. CLARITIN [Suspect]
     Dosage: UNK
  6. NIASPAN [Suspect]
     Dosage: UNK
  7. TRICOR [Suspect]
     Dosage: UNK
  8. FORADIL [Concomitant]
     Dosage: UNK
  9. MOMETASONE FUROATE [Concomitant]
     Dosage: UNK

REACTIONS (10)
  - ANAEMIA VITAMIN B12 DEFICIENCY [None]
  - ARTERIAL OCCLUSIVE DISEASE [None]
  - ASTHENIA [None]
  - BLOOD CREATINE PHOSPHOKINASE INCREASED [None]
  - CONCUSSION [None]
  - DYSPHONIA [None]
  - FLUSHING [None]
  - HEPATIC STEATOSIS [None]
  - MUSCLE SPASMS [None]
  - MYALGIA [None]
